FAERS Safety Report 8762962 (Version 2)
Quarter: 2013Q1

REPORT INFORMATION
  Report Type: Spontaneous
  Country: FR (occurrence: None)
  Receive Date: 20120824
  Receipt Date: 20121214
  Transmission Date: 20140127
  Serious: Yes (Hospitalization)
  Sender: FDA-Public Use
  Company Number: DSA_59000_2012

PATIENT
  Age: 54 Year
  Sex: Female

DRUGS (5)
  1. FLAGYL [Suspect]
     Indication: MASTOIDITIS
     Route: 048
     Dates: start: 20120719, end: 20120726
  2. OFLOCET [Suspect]
     Indication: MASTOIDITIS
     Dates: start: 20120619, end: 20120726
  3. ROCEPHIN [Suspect]
     Indication: MASTOIDITIS
     Dosage: (DF INTRAMUSCULAR)
     Route: 030
     Dates: start: 20120619, end: 20120726
  4. ANALGESICS [Concomitant]
  5. PREVISCAN /00789001/ [Concomitant]

REACTIONS (4)
  - Paraesthesia [None]
  - Dysaesthesia [None]
  - Pain [None]
  - Hyporeflexia [None]
